FAERS Safety Report 8138734-8 (Version None)
Quarter: 2012Q1

REPORT INFORMATION
  Report Type: 
  Country: None (occurrence: None)
  Receive Date: 20120215
  Receipt Date: 20120209
  Transmission Date: 20120608
  Serious: Yes (Congenital Anomaly)
  Sender: FDA-Public Use
  Company Number: US-GLAXOSMITHKLINE-A0963968A

PATIENT
  Sex: Female

DRUGS (3)
  1. TRAZODONE HCL [Concomitant]
     Dosage: 50MG PER DAY
  2. PAXIL [Suspect]
     Indication: PRODUCT USED FOR UNKNOWN INDICATION
     Dosage: 40MG PER DAY
     Route: 064
  3. RISPERDAL [Concomitant]
     Dosage: 2MG TWICE PER DAY

REACTIONS (8)
  - AORTIC VALVE INCOMPETENCE [None]
  - PULMONARY VALVE INCOMPETENCE [None]
  - TRICUSPID VALVE INCOMPETENCE [None]
  - BICUSPID AORTIC VALVE [None]
  - EXPOSURE DURING BREAST FEEDING [None]
  - AORTIC VALVE STENOSIS [None]
  - FOETAL EXPOSURE DURING PREGNANCY [None]
  - AORTIC DILATATION [None]
